FAERS Safety Report 10224180 (Version 2)
Quarter: 2014Q2

REPORT INFORMATION
  Report Type: Spontaneous
  Country: US (occurrence: US)
  Receive Date: 20140609
  Receipt Date: 20140609
  Transmission Date: 20141212
  Serious: No
  Sender: FDA-Public Use
  Company Number: US-PFIZER INC-2014154079

PATIENT
  Age: 44 Year
  Sex: Female
  Weight: 95.24 kg

DRUGS (4)
  1. PRISTIQ [Suspect]
     Indication: ANXIETY
     Dosage: 50 MG, 1X/DAY
     Route: 048
     Dates: start: 201203
  2. PRISTIQ [Suspect]
     Indication: STRESS
     Dosage: 50 MG, 1X/DAY
     Route: 048
     Dates: start: 201401, end: 201401
  3. PRISTIQ [Suspect]
     Dosage: 50 MG, ALTERNATE DAY (EVERY OTHER DAY)
     Route: 048
     Dates: start: 201401, end: 2014
  4. PRISTIQ [Suspect]
     Dosage: 50 MG, 1X/DAY
     Route: 048
     Dates: start: 201402

REACTIONS (4)
  - Headache [Recovered/Resolved]
  - Vision blurred [Recovered/Resolved]
  - Dizziness [Recovered/Resolved]
  - Fatigue [Recovered/Resolved]
